FAERS Safety Report 17914426 (Version 1)
Quarter: 2020Q2

REPORT INFORMATION
  Report Type: Spontaneous
  Country: AR (occurrence: AR)
  Receive Date: 20200618
  Receipt Date: 20200618
  Transmission Date: 20200714
  Serious: Yes (Death)
  Sender: FDA-Public Use
  Company Number: AR-JUBILANT PHARMA LTD-2020AR000519

PATIENT
  Sex: Female

DRUGS (2)
  1. SODIUM IODIDE I-131. [Suspect]
     Active Substance: SODIUM IODIDE I-131
     Indication: METASTASES TO PLEURA
     Dosage: AT LEAST ONE ABLATIVE DOSE OVER OR EQUAL TO 100MCI
  2. SODIUM IODIDE I-131. [Suspect]
     Active Substance: SODIUM IODIDE I-131
     Indication: THYROID CANCER METASTATIC

REACTIONS (1)
  - Respiratory failure [Fatal]
